FAERS Safety Report 15655283 (Version 2)
Quarter: 2019Q1

REPORT INFORMATION
  Report Type: Spontaneous
  Country: DE (occurrence: DE)
  Receive Date: 20181126
  Receipt Date: 20190116
  Transmission Date: 20190417
  Serious: Yes (Hospitalization, Other)
  Sender: FDA-Public Use
  Company Number: DE-TEVA-2018-DE-981186

PATIENT
  Age: 31 Year
  Sex: Female

DRUGS (1)
  1. COPAXONE [Suspect]
     Active Substance: GLATIRAMER ACETATE
     Indication: PROGRESSIVE RELAPSING MULTIPLE SCLEROSIS
     Route: 058
     Dates: start: 20171123

REACTIONS (2)
  - Vertigo [Recovered/Resolved]
  - Multiple sclerosis relapse [Recovered/Resolved]

NARRATIVE: CASE EVENT DATE: 20180727
